FAERS Safety Report 9538043 (Version 1)
Quarter: 2013Q3

REPORT INFORMATION
  Report Type: Report from Study
  Country: AR (occurrence: AR)
  Receive Date: 20130920
  Receipt Date: 20130920
  Transmission Date: 20140515
  Serious: Yes (Other)
  Sender: FDA-Public Use
  Company Number: AR-ROCHE-1277868

PATIENT
  Sex: Female

DRUGS (2)
  1. RANIBIZUMAB [Suspect]
     Indication: MACULOPATHY
     Route: 050
     Dates: start: 2012
  2. RANIBIZUMAB [Suspect]
     Route: 050
     Dates: start: 201306

REACTIONS (5)
  - Colon cancer [Not Recovered/Not Resolved]
  - Fatigue [Not Recovered/Not Resolved]
  - Pain in extremity [Not Recovered/Not Resolved]
  - Depressed mood [Not Recovered/Not Resolved]
  - Urticaria [Not Recovered/Not Resolved]
